FAERS Safety Report 10421933 (Version 3)
Quarter: 2014Q3

REPORT INFORMATION
  Report Type: Report from Study
  Country: TR (occurrence: TR)
  Receive Date: 20140901
  Receipt Date: 20140919
  Transmission Date: 20150326
  Serious: Yes (Hospitalization)
  Sender: FDA-Public Use
  Company Number: PHHY2014TR047952

PATIENT
  Age: 10 Year
  Sex: Female
  Weight: 25.5 kg

DRUGS (3)
  1. EXJADE [Suspect]
     Active Substance: DEFERASIROX
     Dosage: 750 MG, DAILY
     Route: 048
  2. EXJADE [Suspect]
     Active Substance: DEFERASIROX
     Indication: THALASSAEMIA BETA
     Dosage: 375 MG, DAILY
     Route: 048
     Dates: start: 2009
  3. EXJADE [Suspect]
     Active Substance: DEFERASIROX
     Dosage: 375 MG, DAILY
     Route: 048

REACTIONS (5)
  - Serum ferritin increased [Unknown]
  - Hypersplenism [Not Recovered/Not Resolved]
  - Back pain [Not Recovered/Not Resolved]
  - Pyrexia [Not Recovered/Not Resolved]
  - Haemoglobin decreased [Unknown]

NARRATIVE: CASE EVENT DATE: 20140401
